FAERS Safety Report 6615622-7 (Version None)
Quarter: 2010Q1

REPORT INFORMATION
  Report Type: 
  Country: None (occurrence: None)
  Receive Date: 20100305
  Receipt Date: 20100225
  Transmission Date: 20100710
  Serious: Yes (Other)
  Sender: FDA-Public Use
  Company Number: DK-ROCHE-683475

PATIENT
  Sex: Female
  Weight: 31.8 kg

DRUGS (2)
  1. HERCEPTIN [Suspect]
     Indication: BREAST NEOPLASM
     Route: 042
     Dates: start: 20091026
  2. DULCOLAX [Concomitant]
     Route: 048
     Dates: start: 19800101

REACTIONS (1)
  - HERPES ZOSTER [None]
